FAERS Safety Report 15065339 (Version 3)
Quarter: 2018Q4

REPORT INFORMATION
  Report Type: Report from Study
  Country: US (occurrence: US)
  Receive Date: 20180626
  Receipt Date: 20181004
  Transmission Date: 20190204
  Serious: Yes (Other)
  Sender: FDA-Public Use
  Company Number: US-ASTRAZENECA-2018SE70957

PATIENT
  Age: 73 Year
  Sex: Female
  Weight: 54.2 kg

DRUGS (1)
  1. IRESSA [Suspect]
     Active Substance: GEFITINIB
     Indication: LUNG CARCINOMA CELL TYPE UNSPECIFIED STAGE 0
     Route: 048
     Dates: start: 20180529

REACTIONS (10)
  - Eye swelling [Recovering/Resolving]
  - Pruritus [Not Recovered/Not Resolved]
  - Eye pruritus [Recovering/Resolving]
  - Eye disorder [Not Recovered/Not Resolved]
  - Haemorrhoids [Not Recovered/Not Resolved]
  - Nasopharyngitis [Not Recovered/Not Resolved]
  - Retinal disorder [Not Recovered/Not Resolved]
  - Glaucoma [Not Recovered/Not Resolved]
  - Eye discharge [Recovering/Resolving]
  - Dry skin [Not Recovered/Not Resolved]
